FAERS Safety Report 4362446-X (Version None)
Quarter: 2004Q2

REPORT INFORMATION
  Report Type: 
  Country: None (occurrence: None)
  Receive Date: 20040521
  Receipt Date: 20040514
  Transmission Date: 20050107
  Serious: Yes (Other)
  Sender: FDA-Public Use
  Company Number: US-GLAXOSMITHKLINE-A0511437A

PATIENT
  Sex: Male

DRUGS (2)
  1. AVANDIA [Suspect]
     Dosage: 8MG UNKNOWN
     Route: 048
  2. DIABETES MEDICATION [Concomitant]

REACTIONS (4)
  - DIABETES INSIPIDUS [None]
  - FLUID RETENTION [None]
  - HYPERNATRAEMIA [None]
  - PLEURAL EFFUSION [None]
